FAERS Safety Report 23196766 (Version 1)
Quarter: 2023Q4

REPORT INFORMATION
  Report Type: Spontaneous
  Country: TW (occurrence: TW)
  Receive Date: 20231117
  Receipt Date: 20231117
  Transmission Date: 20240109
  Serious: Yes (Hospitalization, Other)
  Sender: FDA-Public Use
  Company Number: TW-009507513-2311TWN006274

PATIENT
  Age: 67 Year
  Sex: Female

DRUGS (1)
  1. JANUVIA [Suspect]
     Active Substance: SITAGLIPTIN PHOSPHATE
     Dosage: 100 MILLIGRAM
     Route: 048
     Dates: start: 202008

REACTIONS (3)
  - Urosepsis [Recovered/Resolved]
  - Urinary tract infection [Recovered/Resolved]
  - Hyperglycaemia [Recovered/Resolved]
